FAERS Safety Report 4750888-X (Version None)
Quarter: 2005Q3

REPORT INFORMATION
  Report Type: 
  Country: None (occurrence: None)
  Receive Date: 20050822
  Receipt Date: 20050812
  Transmission Date: 20060218
  Serious: Yes (Disabling)
  Sender: FDA-Public Use
  Company Number: 2005102335

PATIENT
  Age: 43 Year
  Sex: Male

DRUGS (4)
  1. LIPITOR [Suspect]
     Indication: BLOOD CHOLESTEROL INCREASED
     Dosage: 20 MG (20 MG, 1 IN 1 D), ORAL
     Route: 048
     Dates: start: 20040701, end: 20050701
  2. VIAGRA [Suspect]
     Indication: ERECTILE DYSFUNCTION
     Dosage: ORAL
     Route: 048
     Dates: start: 20030101
  3. DEPAKOTE [Concomitant]
  4. AMBIEN [Concomitant]

REACTIONS (13)
  - FEELING ABNORMAL [None]
  - IMPAIRED WORK ABILITY [None]
  - INSOMNIA [None]
  - LOW DENSITY LIPOPROTEIN INCREASED [None]
  - MOOD ALTERED [None]
  - MOVEMENT DISORDER [None]
  - MUSCLE INJURY [None]
  - MYALGIA [None]
  - NERVOUSNESS [None]
  - PAIN IN EXTREMITY [None]
  - PRIMARY HYPOGONADISM [None]
  - UNEVALUABLE EVENT [None]
  - WEIGHT DECREASED [None]
